FAERS Safety Report 23323677 (Version 1)
Quarter: 2023Q4

REPORT INFORMATION
  Report Type: Other
  Country: US (occurrence: None)
  Receive Date: 20231220
  Receipt Date: 20231220
  Transmission Date: 20240110
  Serious: No
  Sender: FDA-Public Use
  Company Number: US-ROCHE-3437581

PATIENT
  Age: 3 Year
  Sex: Male

DRUGS (5)
  1. RITUXIMAB [Suspect]
     Active Substance: RITUXIMAB
     Indication: Erdheim-Chester disease
     Route: 065
  2. PREDNISONE [Concomitant]
     Active Substance: PREDNISONE
  3. METHOTREXATE [Concomitant]
     Active Substance: METHOTREXATE
     Indication: Idiopathic orbital inflammation
  4. DABRAFENIB [Concomitant]
     Active Substance: DABRAFENIB
     Indication: Erdheim-Chester disease
     Route: 048
  5. TRAMETINIB [Concomitant]
     Active Substance: TRAMETINIB
     Route: 048

REACTIONS (1)
  - Treatment failure [Unknown]
